FAERS Safety Report 8990344 (Version 3)
Quarter: 2014Q2

REPORT INFORMATION
  Report Type: Spontaneous
  Country: US (occurrence: US)
  Receive Date: 20121228
  Receipt Date: 20140403
  Transmission Date: 20141212
  Serious: Yes (Hospitalization)
  Sender: FDA-Public Use
  Company Number: US-B.I. PHARMACEUTICALS,INC./RIDGEFIELD-2012-BI-04340BP

PATIENT
  Age: 76 Year
  Sex: Female
  Weight: 86.18 kg

DRUGS (22)
  1. PRADAXA [Suspect]
     Indication: ANTICOAGULANT THERAPY
     Dosage: 300 MG
     Route: 048
     Dates: start: 20101123, end: 20101222
  2. CALCIUM CITRATE [Concomitant]
     Route: 065
  3. COREG [Concomitant]
     Route: 065
  4. FLONASE [Concomitant]
     Route: 065
  5. FLAGYL [Concomitant]
     Route: 065
  6. KLOR-CON [Concomitant]
     Route: 065
  7. LANTUS [Concomitant]
     Route: 065
  8. LASIX [Concomitant]
     Route: 065
  9. LOMOTIL [Concomitant]
     Route: 065
  10. NOVOLOG [Concomitant]
     Route: 065
  11. PHENERGAN [Concomitant]
     Route: 065
  12. PRAVACHOL [Concomitant]
     Route: 065
  13. PRILOSEC [Concomitant]
     Route: 065
  14. PROTONIX [Concomitant]
     Route: 065
  15. REGLAN [Concomitant]
     Route: 065
  16. REMERON [Concomitant]
     Route: 065
  17. REQUIP [Concomitant]
     Route: 065
  18. TYLENOL [Concomitant]
     Route: 065
  19. VITAMIN C [Concomitant]
     Route: 065
  20. FEOSOL [Concomitant]
     Route: 065
  21. ULTRAM [Concomitant]
     Route: 065
  22. VICODIN [Concomitant]
     Route: 065

REACTIONS (5)
  - Coagulopathy [Recovered/Resolved]
  - Mental status changes [Unknown]
  - Anaemia [Unknown]
  - Azotaemia [Unknown]
  - Contusion [Unknown]
